FAERS Safety Report 18013934 (Version 1)
Quarter: 2020Q3

REPORT INFORMATION
  Report Type: Spontaneous
  Country: US (occurrence: US)
  Receive Date: 20200713
  Receipt Date: 20200713
  Transmission Date: 20201103
  Serious: Yes (Other)
  Sender: FDA-Public Use
  Company Number: US-CADILA HEALTHCARE LIMITED-US-ZYDUS-053122

PATIENT

DRUGS (12)
  1. MORPHINE [Suspect]
     Active Substance: MORPHINE
     Indication: SEDATIVE THERAPY
     Dosage: 0.14 MILLIGRAM/KILOGRAM PER HOUR
     Route: 065
  2. MIDAZOLAM. [Suspect]
     Active Substance: MIDAZOLAM
     Dosage: 0.08 MILLIGRAM/KILOGRAM (PER HOUR)
     Route: 065
  3. RISPERIDONE. [Suspect]
     Active Substance: RISPERIDONE
     Dosage: 0.13 MILLIGRAM
     Route: 065
  4. MELATONIN [Suspect]
     Active Substance: MELATONIN
     Indication: SEDATIVE THERAPY
     Dosage: UNK, PRN NIGHTLY
  5. GABAPENTIN. [Suspect]
     Active Substance: GABAPENTIN
     Dosage: 12.5 MILLIGRAM/KILOGRAM, BID
     Route: 065
  6. CLONIDINE. [Suspect]
     Active Substance: CLONIDINE
     Indication: SEDATIVE THERAPY
     Dosage: 0.1 MILLIGRAM
  7. LORAZEPAM. [Suspect]
     Active Substance: LORAZEPAM
     Indication: SEDATIVE THERAPY
     Dosage: 0.6 MILLIGRAM/KILOGRAM, QID
     Route: 065
  8. METHADONE [Suspect]
     Active Substance: METHADONE HYDROCHLORIDE
     Indication: SEDATIVE THERAPY
     Dosage: 0.2 MILLIGRAM/KILOGRAM, QID
     Route: 065
  9. DEXMEDETOMIDINE. [Suspect]
     Active Substance: DEXMEDETOMIDINE
     Indication: SEDATIVE THERAPY
     Dosage: 1 MICROGRAM/KILOGRAM
     Route: 065
  10. RISPERIDONE. [Suspect]
     Active Substance: RISPERIDONE
     Indication: DELIRIUM
     Dosage: 0.2 MILLIGRAM
     Route: 065
  11. MORPHINE [Suspect]
     Active Substance: MORPHINE
     Dosage: 0.07 MILLIGRAM/KILOGRAM PER HOUR
     Route: 065
  12. MIDAZOLAM. [Suspect]
     Active Substance: MIDAZOLAM
     Indication: SEDATIVE THERAPY
     Dosage: 0.13 MILLIGRAM/KILOGRAM PER HOUR
     Route: 065

REACTIONS (2)
  - Product use issue [Unknown]
  - Delirium [Recovered/Resolved]
